FAERS Safety Report 4631161-7 (Version None)
Quarter: 2005Q2

REPORT INFORMATION
  Report Type: 
  Country: None (occurrence: None)
  Receive Date: 20050407
  Receipt Date: 20050407
  Transmission Date: 20051028
  Serious: No
  Sender: FDA-Public Use
  Company Number: None

PATIENT
  Sex: Female
  Weight: 95 kg

DRUGS (2)
  1. TEMODAR [Suspect]
     Dosage: SEE IMAGE
     Dates: start: 20050316
  2. IRINOTECAN HCL [Suspect]
     Dosage: 200 MG/M ON DAY 1 AND DAY 15

REACTIONS (2)
  - CHILLS [None]
  - URINARY TRACT INFECTION [None]
